FAERS Safety Report 4918750-7 (Version None)
Quarter: 2006Q1

REPORT INFORMATION
  Report Type: 
  Country: None (occurrence: None)
  Receive Date: 20060222
  Receipt Date: 20060207
  Transmission Date: 20060701
  Serious: Yes (Hospitalization)
  Sender: FDA-Public Use
  Company Number: CA-AMGEN-US168486

PATIENT
  Sex: Female
  Weight: 16 kg

DRUGS (5)
  1. ENBREL [Suspect]
     Indication: JUVENILE ARTHRITIS
     Route: 058
     Dates: start: 20040901, end: 20050718
  2. METHOTREXATE [Concomitant]
     Route: 048
     Dates: start: 20020901, end: 20050718
  3. METHOTREXATE [Concomitant]
     Route: 058
     Dates: start: 20050805
  4. PREDNISONE [Concomitant]
  5. FOLIC ACID [Concomitant]
     Route: 048

REACTIONS (9)
  - ARTHRITIS BACTERIAL [None]
  - CANDIDIASIS [None]
  - CATHETER RELATED INFECTION [None]
  - HYPOKALAEMIA [None]
  - ORAL INTAKE REDUCED [None]
  - OTITIS MEDIA [None]
  - PHARYNGITIS [None]
  - SINUS BRADYCARDIA [None]
  - STREPTOCOCCAL SEPSIS [None]
